FAERS Safety Report 9124956 (Version 2)
Quarter: 2013Q2

REPORT INFORMATION
  Report Type: Spontaneous
  Country: US (occurrence: US)
  Receive Date: 20130117
  Receipt Date: 20130425
  Transmission Date: 20140414
  Serious: No
  Sender: FDA-Public Use
  Company Number: US-009507513-1301USA006703

PATIENT
  Sex: Female
  Weight: 89.8 kg

DRUGS (1)
  1. PRINZIDE [Suspect]
     Dosage: UNK, 20 MG TOTAL DAILY DOSE
     Route: 048

REACTIONS (1)
  - Drug ineffective [Unknown]
